FAERS Safety Report 20829972 (Version 1)
Quarter: 2022Q2

REPORT INFORMATION
  Report Type: Spontaneous
  Country: FR (occurrence: FR)
  Receive Date: 20220514
  Receipt Date: 20220514
  Transmission Date: 20220721
  Serious: Yes (Hospitalization)
  Sender: FDA-Public Use
  Company Number: None

PATIENT
  Age: 68 Year
  Sex: Male
  Weight: 67 kg

DRUGS (17)
  1. LANSOPRAZOLE [Suspect]
     Active Substance: LANSOPRAZOLE
     Indication: Gastrointestinal disorder
     Dosage: 15 MG , FREQUENCY TIME : 1 DAY , DURATION : 1 MONTH
     Route: 048
     Dates: start: 202103, end: 20210421
  2. LANSOPRAZOLE [Suspect]
     Active Substance: LANSOPRAZOLE
     Dosage: 15 MG , FREQUENCY TIME : 1 DAY , DURATION : 4 DAYS
     Route: 048
     Dates: start: 20210427, end: 20210430
  3. VIMPAT [Suspect]
     Active Substance: LACOSAMIDE
     Indication: Seizure prophylaxis
     Dosage: 1 G , FREQUENCY TIME : 1 DAY , DURATION : 33 DAYS
     Route: 048
     Dates: start: 20210401, end: 20210503
  4. OPDIVO [Suspect]
     Active Substance: NIVOLUMAB
     Indication: Metastatic malignant melanoma
     Dosage: UNKNOWN , STRENGTH : 10 MG/ML , DURATION : 1 DAY
     Route: 041
     Dates: start: 20210419, end: 20210419
  5. YERVOY [Suspect]
     Active Substance: IPILIMUMAB
     Indication: Metastatic malignant melanoma
     Dosage: UNKNOWN ,  DURATION :  1 DAY , DURATION : 5 MG/ML
     Route: 041
     Dates: start: 20210419, end: 20210419
  6. ALFUZOSIN [Suspect]
     Active Substance: ALFUZOSIN
     Dosage: UNKNOWN ,  DURATION :  4 DAYS
     Route: 048
     Dates: start: 20210418, end: 20210421
  7. ALFUZOSIN [Suspect]
     Active Substance: ALFUZOSIN
     Dosage: UNKNOWN ,  DURATION :  7 DAYS
     Route: 048
     Dates: start: 20210427, end: 20210503
  8. IOBITRIDOL [Suspect]
     Active Substance: IOBITRIDOL
     Dosage: 5 ADMINISTRATIONS OVER THE PERIOD SEE COMMENT , DURATION : 68 DAYS
     Route: 042
     Dates: start: 20210222, end: 20210430
  9. BACTRIM [Suspect]
     Active Substance: SULFAMETHOXAZOLE\TRIMETHOPRIM
     Indication: Pneumocystis jirovecii pneumonia
     Dosage: SOLUTION FOR INJECTION FOR INFUSION , UNIT DOSE : 12 DF , DURATION : 9 DAYS , FREQUENCY TIME : 1 DAY
     Route: 041
     Dates: start: 20210422, end: 20210430
  10. INNOHEP [Concomitant]
     Active Substance: TINZAPARIN SODIUM
     Dosage: INNOHEP 10 000 U.I. ANTI-XA/0,5 ML , UNIT DOSE : 1 DF  , FREQUENCY TIME : 1 DAY
     Route: 058
     Dates: start: 20210427
  11. COMIRNATY [Concomitant]
     Active Substance: TOZINAMERAN
     Indication: COVID-19 immunisation
     Dosage: UNKNOWN , COMIRNATY, DISPERSION TO BE DILUTED FOR INJECTION. COVID-19 MRNA VACCINE (MODIFIED NUCLEOS
     Route: 030
     Dates: start: 20210305, end: 20210407
  12. PIPERACILLIN SODIUM\TAZOBACTAM SODIUM [Concomitant]
     Active Substance: PIPERACILLIN SODIUM\TAZOBACTAM SODIUM
     Dosage: UNKNOWN ,  DURATION : 6 DAYS , UNIT DOSE : 16 G , FREQUENCY TIME : 1 DAY
     Route: 042
     Dates: start: 20210421, end: 20210426
  13. OLANZAPINE [Concomitant]
     Active Substance: OLANZAPINE
     Dosage: UNKNOWN ,  DURATION :  19 DAYS
     Route: 048
     Dates: start: 20210402, end: 20210420
  14. CIPROFLOXACIN [Concomitant]
     Active Substance: CIPROFLOXACIN
     Dosage: UNKNOWN ,  DURATION :  13 DAYS , UNIT DOSE : 1 G , FREQUENCY TIME : 1 DAY
     Route: 042
     Dates: start: 20210404, end: 20210416
  15. SPIRAMYCIN [Concomitant]
     Active Substance: SPIRAMYCIN
     Dosage: FREQUENCY TIME : 1 DAY , UNIT DOSE : 6 MU , DURATION :  2 DAYS
     Route: 042
     Dates: start: 20210421, end: 20210422
  16. RAMIPRIL [Concomitant]
     Active Substance: RAMIPRIL
     Dosage: 25 MG , FREQUENCY TIME : 1 DAY
     Route: 048
     Dates: start: 20210429
  17. RAMIPRIL [Concomitant]
     Active Substance: RAMIPRIL
     Dosage: FREQUENCY TIME : 1 DAY , UNIT DOSE : 25 MG , DURATION :  1 MONTH
     Route: 048
     Dates: start: 202103, end: 20210421

REACTIONS (1)
  - Drug reaction with eosinophilia and systemic symptoms [Recovered/Resolved]

NARRATIVE: CASE EVENT DATE: 20210430
